FAERS Safety Report 5427402-9 (Version None)
Quarter: 2007Q3

REPORT INFORMATION
  Report Type: 
  Country: None (occurrence: None)
  Receive Date: 20070823
  Receipt Date: 20070813
  Transmission Date: 20080115
  Serious: Yes (Hospitalization)
  Sender: FDA-Public Use
  Company Number: 2007-162910-NL

PATIENT
  Age: 69 Year
  Sex: Female

DRUGS (5)
  1. DANAPAROID SODIUM [Suspect]
     Dosage: SUBCUTANEOUS
     Route: 058
     Dates: start: 20070618, end: 20070702
  2. ESOMEPRAZOLE MAGNESIUM [Suspect]
     Dosage: 40 MG INTRAVENOUS (NOS)
     Route: 042
     Dates: start: 20070614, end: 20070702
  3. AMIODARONE HYDROCHLORIDE [Suspect]
     Dosage: INTRAVENOUS (NOS)
     Route: 042
     Dates: start: 20070614, end: 20070702
  4. CASPOFUNGIN ACETATE [Suspect]
     Dosage: INTRAVENOUS (NOS)
     Route: 042
     Dates: start: 20070624, end: 20070702
  5. NEFOPAM HYDROCHLORIDE [Suspect]
     Dosage: INTRAVENOUS (NOS)
     Route: 042
     Dates: end: 20070702

REACTIONS (1)
  - STEVENS-JOHNSON SYNDROME [None]
